FAERS Safety Report 5707240-X (Version None)
Quarter: 2008Q2

REPORT INFORMATION
  Report Type: 
  Country: None (occurrence: None)
  Receive Date: 20080416
  Receipt Date: 20080408
  Transmission Date: 20081010
  Serious: Yes (Other)
  Sender: FDA-Public Use
  Company Number: US-BAYER-200811001BCC

PATIENT
  Age: 18 Year
  Sex: Female

DRUGS (1)
  1. MIDOL [Suspect]
     Indication: SELF INJURIOUS BEHAVIOUR
     Route: 048
     Dates: start: 20080310

REACTIONS (1)
  - SOMNOLENCE [None]
